FAERS Safety Report 8032598-9 (Version None)
Quarter: 2012Q1

REPORT INFORMATION
  Report Type: 
  Country: None (occurrence: None)
  Receive Date: 20120105
  Receipt Date: 20111221
  Transmission Date: 20120608
  Serious: Yes (Death, Hospitalization, Other)
  Sender: FDA-Public Use
  Company Number: 2011MP100356

PATIENT
  Age: 20 Year
  Sex: Female
  Weight: 44 kg

DRUGS (3)
  1. BRENTUXIMAB VEDOTIN (BRENTUXIMAB VEDOTIN) INJECTION [Suspect]
     Indication: HODGKIN'S DISEASE
     Dosage: 80 MG, INTRAVENOUS
     Route: 042
     Dates: start: 20110624, end: 20110829
  2. CORTISON ACETATE (CORITSON ACETATE) [Concomitant]
  3. BACTRIM (SULFAMETHOXAZOLE, TRIMETHOPRIN) [Concomitant]

REACTIONS (3)
  - THROMBOCYTOPENIA [None]
  - ASPERGILLOSIS [None]
  - HODGKIN'S DISEASE [None]
